FAERS Safety Report 13176285 (Version 2)
Quarter: 2017Q4

REPORT INFORMATION
  Report Type: Report from Study
  Country: PR (occurrence: PR)
  Receive Date: 20170201
  Receipt Date: 20171030
  Transmission Date: 20180320
  Serious: Yes (Death, Other)
  Sender: FDA-Public Use
  Company Number: PR-BAYER-2016-243366

PATIENT
  Age: 74 Year
  Sex: Female

DRUGS (5)
  1. ADEMPAS [Suspect]
     Active Substance: RIOCIGUAT
     Indication: PULMONARY ARTERIAL HYPERTENSION
     Dosage: UNK
  2. ADEMPAS [Suspect]
     Active Substance: RIOCIGUAT
     Indication: PULMONARY ARTERIAL HYPERTENSION
     Dosage: 1 MG, TID
     Route: 048
  3. ADEMPAS [Suspect]
     Active Substance: RIOCIGUAT
     Indication: PULMONARY ARTERIAL HYPERTENSION
     Dosage: 1 MG, BID 2 MG DAILY (1MG AM AND 1 MG LUNCHTIME)
  4. AMLODIPINE [Concomitant]
     Active Substance: AMLODIPINE BESYLATE
     Dosage: UNK
  5. ADEMPAS [Suspect]
     Active Substance: RIOCIGUAT
     Indication: PULMONARY ARTERIAL HYPERTENSION
     Dosage: UNK
     Route: 048
     Dates: start: 20161207

REACTIONS (10)
  - Insomnia [Unknown]
  - Fatigue [None]
  - Oedema peripheral [Recovering/Resolving]
  - Oxygen saturation abnormal [Recovering/Resolving]
  - Oxygen saturation decreased [Unknown]
  - Chest discomfort [Unknown]
  - Death [Fatal]
  - Swelling [Unknown]
  - Abdominal discomfort [None]
  - Intentional product misuse [None]

NARRATIVE: CASE EVENT DATE: 201701
